FAERS Safety Report 21978311 (Version 1)
Quarter: 2023Q1

REPORT INFORMATION
  Report Type: Spontaneous
  Country: JP (occurrence: JP)
  Receive Date: 20230210
  Receipt Date: 20230210
  Transmission Date: 20230418
  Serious: Yes (Other)
  Sender: FDA-Public Use
  Company Number: JP-JNJFOC-20230207625

PATIENT
  Age: 7 Decade
  Sex: Female

DRUGS (1)
  1. BOSENTAN [Suspect]
     Active Substance: BOSENTAN
     Indication: Skin ulcer
     Route: 048
     Dates: end: 20230124

REACTIONS (3)
  - Pulmonary arterial hypertension [Not Recovered/Not Resolved]
  - Sjogren^s syndrome [Not Recovered/Not Resolved]
  - Hypertension [Unknown]
